FAERS Safety Report 4338338-9 (Version None)
Quarter: 2004Q2

REPORT INFORMATION
  Report Type: 
  Country: None (occurrence: None)
  Receive Date: 20040407
  Receipt Date: 20040326
  Transmission Date: 20050107
  Serious: Yes (Hospitalization)
  Sender: FDA-Public Use
  Company Number: 02P-056-0205305-00

PATIENT
  Age: 41 Year
  Sex: Male
  Weight: 71 kg

DRUGS (3)
  1. KALETRA [Suspect]
     Indication: HIV INFECTION
     Dosage: 6 DOSAGE FORMS, 1 IN 1 D, PER ORAL
     Route: 048
     Dates: start: 20010904
  2. TRICOR [Suspect]
     Indication: DRUG USE FOR UNKNOWN INDICATION
     Dosage: 1 DOSAGE FORMS, 1 IN 1 D, PER ORAL
     Route: 048
     Dates: start: 20020112
  3. ZIDOVUDINE W/ LAMIVUDINE [Suspect]
     Indication: HIV INFECTION
     Dosage: 2 DOSAGE FORMS, 1 IN 1 D, PER ORAL
     Route: 048
     Dates: start: 20010904

REACTIONS (3)
  - BLOOD URINE [None]
  - NEPHROLITHIASIS [None]
  - RENAL COLIC [None]
